FAERS Safety Report 8608025-7 (Version None)
Quarter: 2012Q3

REPORT INFORMATION
  Report Type: 
  Country: None (occurrence: None)
  Receive Date: 20120807
  Receipt Date: 20120725
  Transmission Date: 20120928
  Serious: Yes (Hospitalization)
  Sender: FDA-Public Use
  Company Number: DSA_58673_2012

PATIENT
  Age: 38 Year
  Sex: Female

DRUGS (6)
  1. DEMEROL [Concomitant]
  2. BUSCAPINE [Concomitant]
  3. DICLOFENAC SODIUM [Suspect]
     Dosage: (50 MG BID, 6 DOSES INTRAMUSCULAR)
     Route: 030
  4. METAMIZOLE [Concomitant]
  5. ACETAMINOPHEN [Concomitant]
  6. DIAZEPAM [Concomitant]

REACTIONS (5)
  - PROTEINURIA [None]
  - OLIGOHYDRAMNIOS [None]
  - HYPERTENSION [None]
  - INDUCED LABOUR [None]
  - MATERNAL EXPOSURE DURING PREGNANCY [None]
